FAERS Safety Report 8697814 (Version 2)
Quarter: 2013Q4

REPORT INFORMATION
  Report Type: Spontaneous
  Country: CA (occurrence: CA)
  Receive Date: 20120801
  Receipt Date: 20131105
  Transmission Date: 20140711
  Serious: Yes (Hospitalization)
  Sender: FDA-Public Use
  Company Number: CA-MSD-1208CAN000371

PATIENT
  Age: 41 Year
  Sex: Female

DRUGS (1)
  1. TEMODAL [Suspect]
     Indication: SOFT TISSUE NEOPLASM
     Dosage: 200 MG, QD
     Route: 048
     Dates: start: 20120716, end: 20120720

REACTIONS (4)
  - Abdominal pain lower [Not Recovered/Not Resolved]
  - Disease progression [Unknown]
  - Oedema peripheral [Unknown]
  - Thrombosis [Unknown]
